FAERS Safety Report 4781561-X (Version None)
Quarter: 2005Q3

REPORT INFORMATION
  Report Type: 
  Country: None (occurrence: None)
  Receive Date: 20050922
  Receipt Date: 20050905
  Transmission Date: 20060218
  Serious: Yes (Other)
  Sender: FDA-Public Use
  Company Number: 2005_000049

PATIENT
  Sex: Female

DRUGS (7)
  1. DEPOCYT [Suspect]
     Indication: LYMPHOMA
     Dosage: INTRATHECAL
     Route: 037
  2. METHOTREXATE [Concomitant]
  3. RITUXIMAB [Concomitant]
  4. CYCLOPHOSPHAMIDE [Concomitant]
  5. DOXORUBICIN HCL [Concomitant]
  6. VINCRISTINE [Concomitant]
  7. PREDNISONE [Concomitant]

REACTIONS (5)
  - CEREBROVASCULAR ACCIDENT [None]
  - FACIAL PALSY [None]
  - NEUROTOXICITY [None]
  - PARAESTHESIA [None]
  - PARALYSIS [None]
